FAERS Safety Report 23653767 (Version 1)
Quarter: 2024Q1

REPORT INFORMATION
  Report Type: Spontaneous
  Country: US (occurrence: None)
  Receive Date: 20240319
  Receipt Date: 20240319
  Transmission Date: 20240410
  Serious: Yes (Other)
  Sender: FDA-Public Use
  Company Number: None

PATIENT
  Age: 75 Year
  Sex: Female
  Weight: 75.15 kg

DRUGS (7)
  1. OZEMPIC [Suspect]
     Active Substance: SEMAGLUTIDE
     Indication: Diabetes mellitus
     Dosage: OTHER QUANTITY : 0.25 INJECTION(S);?OTHER FREQUENCY : ONCE PER WEEK;?
     Route: 058
  2. VICTOZA [Suspect]
     Active Substance: LIRAGLUTIDE
  3. ENALAPRIL [Concomitant]
     Active Substance: ENALAPRIL
  4. hydroclorozide [Concomitant]
  5. Dexcom G7 [Concomitant]
  6. blood glucose monitor tests [Concomitant]
  7. VITAMINS [Concomitant]
     Active Substance: VITAMINS

REACTIONS (1)
  - Blood glucose increased [None]

NARRATIVE: CASE EVENT DATE: 20240318
